FAERS Safety Report 8450775-X (Version None)
Quarter: 2012Q2

REPORT INFORMATION
  Report Type: 
  Country: None (occurrence: None)
  Receive Date: 20120620
  Receipt Date: 20120614
  Transmission Date: 20120825
  Serious: Yes (Hospitalization)
  Sender: FDA-Public Use
  Company Number: US-ELI_LILLY_AND_COMPANY-US201205008526

PATIENT
  Sex: Male
  Weight: 82.086 kg

DRUGS (22)
  1. CETUXIMAB [Suspect]
     Indication: SQUAMOUS CELL CARCINOMA
     Dosage: 250 MG/M2, WEEKLY (1/W)
     Route: 042
     Dates: start: 20120411
  2. DOXYCYCLINE [Concomitant]
  3. ROXICET [Concomitant]
  4. POTASSIUM CHLORIDE [Concomitant]
  5. TYLENOL (CAPLET) [Concomitant]
  6. METOLAZONE [Concomitant]
  7. CIPROFLOXACIN HCL [Concomitant]
  8. LIDOCAINE [Concomitant]
  9. ZETIA [Concomitant]
  10. AMLODIPINE [Concomitant]
  11. PERSANTINE [Concomitant]
  12. SIMVASTATIN [Concomitant]
  13. VITAMIN B-12 [Concomitant]
  14. PEMETREXED [Suspect]
     Indication: SQUAMOUS CELL CARCINOMA
     Dosage: 500 MG/M2, EVERY 21 DAYS
     Route: 042
     Dates: start: 20120418
  15. VENLAFAXINE HYDROCHOLRIDE [Concomitant]
  16. COMPAZINE [Concomitant]
     Dosage: UNK
  17. RADIATION [Suspect]
     Indication: SQUAMOUS CELL CARCINOMA
     Dosage: UNK
  18. MUCINEX [Concomitant]
  19. DIOVAN HCT [Concomitant]
  20. ADVAIR DISKUS 100/50 [Concomitant]
  21. FOLIC ACID [Concomitant]
  22. OMEPRAZOLE [Concomitant]

REACTIONS (7)
  - DEHYDRATION [None]
  - VOMITING [None]
  - NAUSEA [None]
  - OEDEMA [None]
  - CONSTIPATION [None]
  - CELLULITIS [None]
  - ABDOMINAL PAIN [None]
